FAERS Safety Report 10353691 (Version 1)
Quarter: 2014Q3

REPORT INFORMATION
  Report Type: Spontaneous
  Country: US (occurrence: US)
  Receive Date: 20140731
  Receipt Date: 20140731
  Transmission Date: 20150326
  Serious: Yes (Hospitalization)
  Sender: FDA-Public Use
  Company Number: US-ROCHE-1443427

PATIENT
  Age: 74 Year
  Sex: Female

DRUGS (1)
  1. RITUXAN [Suspect]
     Active Substance: RITUXIMAB
     Indication: MYOSITIS
     Route: 042

REACTIONS (3)
  - Feeding disorder [Unknown]
  - Off label use [Unknown]
  - Aphthous stomatitis [Unknown]
